FAERS Safety Report 19713531 (Version 1)
Quarter: 2021Q3

REPORT INFORMATION
  Report Type: Report from Study
  Country: US (occurrence: US)
  Receive Date: 20210817
  Receipt Date: 20210817
  Transmission Date: 20211014
  Serious: Yes (Other)
  Sender: FDA-Public Use
  Company Number: US-JAZZ-2020-US-015760

PATIENT
  Sex: Female
  Weight: 47.62 kg

DRUGS (11)
  1. XYREM [Suspect]
     Active Substance: SODIUM OXYBATE
     Indication: NARCOLEPSY
     Dosage: 2.25 GRAM, BID
     Route: 048
     Dates: start: 202007, end: 202007
  2. XYREM [Suspect]
     Active Substance: SODIUM OXYBATE
     Dosage: 4.5 GRAM, BID
     Route: 048
     Dates: start: 202007
  3. VITAMIN D3 [Concomitant]
     Active Substance: CHOLECALCIFEROL
  4. HYDROXYZINE HCL [Concomitant]
     Active Substance: HYDROXYZINE HYDROCHLORIDE
  5. METHYLPHENIDATE. [Concomitant]
     Active Substance: METHYLPHENIDATE
  6. EPIPEN [Concomitant]
     Active Substance: EPINEPHRINE
  7. VISTARIL (HYDROXYZINE HYDROCHLORIDE) [Suspect]
     Active Substance: HYDROXYZINE HYDROCHLORIDE
     Indication: BLOOD PRESSURE INCREASED
  8. METOPROLOL. [Suspect]
     Active Substance: METOPROLOL
     Indication: HEART RATE
  9. XYREM [Suspect]
     Active Substance: SODIUM OXYBATE
     Indication: CATAPLEXY
     Dosage: DOSE ADJUSTMENT
     Route: 048
     Dates: start: 202007, end: 202007
  10. VITAMIN D2 [Concomitant]
     Active Substance: ERGOCALCIFEROL
  11. MODAFINIL. [Concomitant]
     Active Substance: MODAFINIL

REACTIONS (6)
  - Feeling jittery [Unknown]
  - Somnolence [Unknown]
  - Weight decreased [Unknown]
  - Heart rate increased [Not Recovered/Not Resolved]
  - Blood pressure increased [Recovered/Resolved]
  - Asthenia [Unknown]
